FAERS Safety Report 11807078 (Version 2)
Quarter: 2015Q4

REPORT INFORMATION
  Report Type: Spontaneous
  Country: US (occurrence: US)
  Receive Date: 20151207
  Receipt Date: 20151207
  Transmission Date: 20160305
  Serious: No
  Sender: FDA-Public Use
  Company Number: US-VIFOR (INTERNATIONAL) INC.-VIT-2015-01598

PATIENT
  Age: 65 Year
  Sex: Female
  Weight: 96.5 kg

DRUGS (13)
  1. ALPHA LIPOIC ACID [Concomitant]
     Active Substance: .ALPHA.-LIPOIC ACID
  2. LASIX [Concomitant]
     Active Substance: FUROSEMIDE
  3. STOOL SOFTENER [Concomitant]
     Active Substance: DOCUSATE CALCIUM
  4. LEVEMIR [Concomitant]
     Active Substance: INSULIN DETEMIR
  5. SINGULAIR [Concomitant]
     Active Substance: MONTELUKAST SODIUM
  6. LUNESTA [Concomitant]
     Active Substance: ESZOPICLONE
  7. MINOXIDIL. [Concomitant]
     Active Substance: MINOXIDIL
  8. FLONASE [Concomitant]
     Active Substance: FLUTICASONE PROPIONATE
  9. SODIUM BICARBONATE. [Concomitant]
     Active Substance: SODIUM BICARBONATE
  10. FOSRENOL [Concomitant]
     Active Substance: LANTHANUM CARBONATE
  11. VELPHORO [Suspect]
     Active Substance: FERRIC OXYHYDROXIDE
     Indication: HYPERPHOSPHATAEMIA
     Dosage: 3 TABLETS DAILY
     Route: 048
     Dates: start: 20150617, end: 20150617
  12. CARVEDILOL. [Concomitant]
     Active Substance: CARVEDILOL
  13. LINZESS [Concomitant]
     Active Substance: LINACLOTIDE

REACTIONS (1)
  - Vomiting [Recovered/Resolved]

NARRATIVE: CASE EVENT DATE: 20150617
